FAERS Safety Report 4806328-5 (Version None)
Quarter: 2005Q4

REPORT INFORMATION
  Report Type: 
  Country: None (occurrence: None)
  Receive Date: 20051021
  Receipt Date: 20050204
  Transmission Date: 20060501
  Serious: Yes (Hospitalization, Disabling)
  Sender: FDA-Public Use
  Company Number: US-ROCHE-394860

PATIENT
  Age: 19 Year
  Sex: Male
  Weight: 62.6 kg

DRUGS (5)
  1. ACCUTANE [Suspect]
     Route: 048
     Dates: start: 20011016, end: 20011116
  2. ACCUTANE [Suspect]
     Route: 048
     Dates: start: 19981208, end: 19981222
  3. ACCUTANE [Suspect]
     Route: 048
     Dates: start: 19990615, end: 19990615
  4. ACCUTANE [Suspect]
     Route: 048
     Dates: start: 20000418
  5. DOXYCYCLINE [Suspect]
     Route: 048
     Dates: start: 20000418

REACTIONS (9)
  - ABDOMINAL PAIN [None]
  - ABDOMINAL TENDERNESS [None]
  - COLITIS [None]
  - COLITIS MICROSCOPIC [None]
  - DIARRHOEA [None]
  - EPISTAXIS [None]
  - GASTROINTESTINAL DISORDER [None]
  - INFLAMMATORY BOWEL DISEASE [None]
  - MULTI-ORGAN DISORDER [None]
